FAERS Safety Report 12495303 (Version 2)
Quarter: 2016Q2

REPORT INFORMATION
  Report Type: Spontaneous
  Country: US (occurrence: US)
  Receive Date: 20160624
  Receipt Date: 20160630
  Transmission Date: 20160815
  Serious: Yes (Other)
  Sender: FDA-Public Use
  Company Number: US-PFIZER INC-2016312705

PATIENT
  Age: 55 Year
  Sex: Female
  Weight: 102.4 kg

DRUGS (15)
  1. TRIAMTERENE. [Concomitant]
     Active Substance: TRIAMTERENE
     Indication: PERIPHERAL SWELLING
     Dosage: 1X/DAY (DOSE WAS 37.25/5 BUT DID NOT KNOW ITS UNIT)
     Route: 048
     Dates: start: 2003
  2. TRIAMTERENE. [Concomitant]
     Active Substance: TRIAMTERENE
     Indication: VENOUS INJURY
  3. LYRICA [Suspect]
     Active Substance: PREGABALIN
     Indication: FIBROMYALGIA
     Dosage: 100 MG, 1X/DAY
     Route: 048
     Dates: start: 20160521
  4. ENBREL [Concomitant]
     Active Substance: ETANERCEPT
     Indication: RHEUMATOID ARTHRITIS
     Dosage: 50 MG, WEEKLY (ONCE A WEEK)
     Route: 058
     Dates: start: 2015
  5. TRIAMTERENE. [Concomitant]
     Active Substance: TRIAMTERENE
     Indication: ULCER
  6. K-DUR [Concomitant]
     Active Substance: POTASSIUM CHLORIDE
     Indication: BLOOD POTASSIUM DECREASED
     Dosage: 10 MEQ, 2X/DAY
     Route: 048
     Dates: start: 201602
  7. VALTREX [Concomitant]
     Active Substance: VALACYCLOVIR HYDROCHLORIDE
     Indication: ORAL PAIN
     Dosage: 500 MG, 1X/DAY
     Route: 048
     Dates: start: 2013
  8. FLUXAL [Concomitant]
     Indication: PROPHYLAXIS
     Dosage: 250 MG, 2X/DAY
     Route: 048
     Dates: start: 201511
  9. FLUXAL [Concomitant]
     Indication: IMMUNE SYSTEM DISORDER
  10. PLAQUINOL [Concomitant]
     Active Substance: HYDROXYCHLOROQUINE SULFATE
     Indication: SYSTEMIC LUPUS ERYTHEMATOSUS
     Dosage: 400 MG, 1X/DAY, (TWO TABLETS ONCE A DAY AT BED TIME)
     Route: 048
     Dates: start: 2011
  11. FLUOXETINE [Concomitant]
     Active Substance: FLUOXETINE HYDROCHLORIDE
     Indication: FIBROMYALGIA
     Dosage: 60 MG, 2X/DAY
     Route: 048
     Dates: start: 201602
  12. BYDUREON [Concomitant]
     Active Substance: EXENATIDE
     Indication: DIABETES MELLITUS
     Dosage: 2 MG, WEEKLY (ONCE A WEEK)
     Route: 058
  13. ENBREL [Concomitant]
     Active Substance: ETANERCEPT
     Indication: SYSTEMIC LUPUS ERYTHEMATOSUS
  14. LISINOPRIL. [Concomitant]
     Active Substance: LISINOPRIL
     Indication: BLOOD PRESSURE ABNORMAL
     Dosage: 5 MG, 1X/DAY
     Route: 048
  15. DRISTAN 12 HR NASAL SPRAY [Concomitant]
     Active Substance: OXYMETAZOLINE HYDROCHLORIDE
     Indication: PRURITUS
     Dosage: 60 MG, 1X/DAY
     Route: 048
     Dates: start: 2013

REACTIONS (3)
  - Feeling abnormal [Unknown]
  - Hypokalaemia [Unknown]
  - Somnolence [Recovering/Resolving]

NARRATIVE: CASE EVENT DATE: 20160609
